FAERS Safety Report 22286157 (Version 3)
Quarter: 2023Q2

REPORT INFORMATION
  Report Type: Report from Study
  Country: US (occurrence: US)
  Receive Date: 20230505
  Receipt Date: 20230630
  Transmission Date: 20230721
  Serious: Yes (Hospitalization)
  Sender: FDA-Public Use
  Company Number: US-ABBVIE-4752515

PATIENT
  Age: 77 Year
  Sex: Male

DRUGS (2)
  1. RINVOQ [Suspect]
     Active Substance: UPADACITINIB
     Indication: Product used for unknown indication
     Route: 048
     Dates: start: 20230227
  2. RINVOQ [Suspect]
     Active Substance: UPADACITINIB
     Indication: Product used for unknown indication
     Dosage: LAST ADMIN DATE: 2023
     Route: 048
     Dates: start: 20230119

REACTIONS (1)
  - Carotid artery occlusion [Not Recovered/Not Resolved]

NARRATIVE: CASE EVENT DATE: 20230410
